FAERS Safety Report 11663925 (Version 2)
Quarter: 2015Q4

REPORT INFORMATION
  Report Type: Report from Study
  Country: US (occurrence: US)
  Receive Date: 20151027
  Receipt Date: 20151029
  Transmission Date: 20160304
  Serious: No
  Sender: FDA-Public Use
  Company Number: PHEH2014US023665

PATIENT
  Sex: Male

DRUGS (3)
  1. EXJADE [Suspect]
     Active Substance: DEFERASIROX
     Indication: IRON OVERLOAD
     Dosage: 1500 MG, QD
     Route: 048
     Dates: start: 201409
  2. EXJADE [Suspect]
     Active Substance: DEFERASIROX
     Dosage: 3 G, QD
     Route: 048
  3. EXJADE [Suspect]
     Active Substance: DEFERASIROX
     Indication: CHRONIC OBSTRUCTIVE PULMONARY DISEASE
     Dosage: 4X500 MG, DAY
     Route: 048

REACTIONS (2)
  - Dysarthria [Unknown]
  - Off label use [Unknown]
